FAERS Safety Report 9116575 (Version 2)
Quarter: 2013Q1

REPORT INFORMATION
  Report Type: Spontaneous
  Country: DE (occurrence: DE)
  Receive Date: 20130225
  Receipt Date: 20130228
  Transmission Date: 20140127
  Serious: Yes (Hospitalization, Other)
  Sender: FDA-Public Use
  Company Number: DE-ABBOTT-13P-062-1052799-00

PATIENT
  Age: 32 None
  Sex: Female
  Weight: 66 kg

DRUGS (4)
  1. HUMIRA [Suspect]
     Indication: CROHN^S DISEASE
     Dates: start: 201209, end: 20130116
  2. CETIRIZIN [Concomitant]
     Indication: ALLERGY PROPHYLAXIS
     Dates: start: 20130115
  3. PANTOPRAZOL [Concomitant]
     Indication: PRODUCT USED FOR UNKNOWN INDICATION
     Dosage: ON DEMAND
     Dates: start: 2010
  4. PROTHYRID [Concomitant]
     Indication: PRODUCT USED FOR UNKNOWN INDICATION
     Dates: start: 2008

REACTIONS (9)
  - Blood pressure decreased [Recovered/Resolved]
  - Anaphylactic shock [Recovered/Resolved]
  - Injection site reaction [Unknown]
  - Injection site urticaria [Unknown]
  - Injection site swelling [Unknown]
  - Tremor [Recovered/Resolved]
  - Tachypnoea [Recovered/Resolved]
  - Pallor [Recovered/Resolved]
  - Depressed level of consciousness [Recovered/Resolved]
